FAERS Safety Report 15352130 (Version 2)
Quarter: 2018Q3

REPORT INFORMATION
  Report Type: Spontaneous
  Country: CN (occurrence: CN)
  Receive Date: 20180905
  Receipt Date: 20180910
  Transmission Date: 20181010
  Serious: Yes (Other)
  Sender: FDA-Public Use
  Company Number: CN-BAYER-2018-159575

PATIENT
  Age: 26 Year
  Sex: Female

DRUGS (1)
  1. YAZ [Suspect]
     Active Substance: DROSPIRENONE\ETHINYL ESTRADIOL
     Dosage: UNK
     Route: 048
     Dates: start: 20180723, end: 20180810

REACTIONS (4)
  - Inappropriate schedule of drug administration [None]
  - Withdrawal bleed [None]
  - Ovulation disorder [None]
  - Ovarian cyst [None]

NARRATIVE: CASE EVENT DATE: 20180723
